FAERS Safety Report 15463562 (Version 4)
Quarter: 2018Q4

REPORT INFORMATION
  Report Type: Report from Study
  Country: PT (occurrence: PT)
  Receive Date: 20181004
  Receipt Date: 20181119
  Transmission Date: 20190204
  Serious: Yes (Life-Threatening, Other)
  Sender: FDA-Public Use
  Company Number: PT-AUROBINDO-AUR-APL-2018-048160

PATIENT
  Age: 35 Year
  Sex: Male

DRUGS (43)
  1. QUETIAPINE FILM-COATED TABLET [Suspect]
     Active Substance: QUETIAPINE
     Indication: HIV INFECTION
  2. VENLAFAXINE [Suspect]
     Active Substance: VENLAFAXINE HYDROCHLORIDE
     Indication: HIV INFECTION
  3. MIRTAZAPINE FILM-COATED TABLET [Suspect]
     Active Substance: MIRTAZAPINE
     Indication: HEPATITIS C
     Dosage: 1 ML OF TRIAMCINOLONE 40 MG INJECTED ()
     Route: 048
  4. MIRTAZAPINE FILM-COATED TABLET [Suspect]
     Active Substance: MIRTAZAPINE
     Indication: CHRONIC HEPATITIS C
  5. LAMIVUDINE. [Suspect]
     Active Substance: LAMIVUDINE
     Indication: CHRONIC HEPATITIS C
  6. EMTRICITABINE + TENOFOVIR DISOPROXIL FUMARATE [Suspect]
     Active Substance: EMTRICITABINE\TENOFOVIR DISOPROXIL FUMARATE
     Indication: ANTIRETROVIRAL THERAPY
  7. EMTRICITABINE + TENOFOVIR DISOPROXIL FUMARATE [Suspect]
     Active Substance: EMTRICITABINE\TENOFOVIR DISOPROXIL FUMARATE
     Indication: CHRONIC HEPATITIS C
  8. TIAPRIDE [Suspect]
     Active Substance: TIAPRIDE
     Indication: HEPATITIS C
     Dosage: 1 ML OF TRIAMCINOLONE 40 MG INJECTED ()
     Route: 065
  9. OLANZAPINE. [Suspect]
     Active Substance: OLANZAPINE
     Indication: HEPATITIS C
  10. TRAZODONE [Suspect]
     Active Substance: TRAZODONE HYDROCHLORIDE
     Indication: HIV INFECTION
  11. MIRTAZAPINE FILM-COATED TABLET [Suspect]
     Active Substance: MIRTAZAPINE
     Indication: HIV INFECTION
  12. LAMIVUDINE. [Suspect]
     Active Substance: LAMIVUDINE
     Indication: ANTIRETROVIRAL THERAPY
  13. METHADONE [Suspect]
     Active Substance: METHADONE HYDROCHLORIDE
     Indication: HEPATITIS C
  14. QUETIAPINE FILM-COATED TABLET [Suspect]
     Active Substance: QUETIAPINE
     Indication: HEPATITIS C
     Dosage: 1 ML OF TRIAMCINOLONE 40 MG INJECTED ()
     Route: 048
  15. TIAPRIDE [Suspect]
     Active Substance: TIAPRIDE
     Indication: HIV INFECTION
  16. VENLAFAXINE [Suspect]
     Active Substance: VENLAFAXINE HYDROCHLORIDE
     Indication: HEPATITIS C
  17. TRAZODONE [Suspect]
     Active Substance: TRAZODONE HYDROCHLORIDE
     Indication: CHRONIC HEPATITIS C
     Dosage: 1 ML OF TRIAMCINOLONE 40 MG INJECTED ()
     Route: 065
  18. TRAZODONE [Suspect]
     Active Substance: TRAZODONE HYDROCHLORIDE
     Indication: HEPATITIS C
  19. SERTRALINE [Suspect]
     Active Substance: SERTRALINE HYDROCHLORIDE
     Indication: HEPATITIS C
  20. SERTRALINE [Suspect]
     Active Substance: SERTRALINE HYDROCHLORIDE
     Indication: ANTIRETROVIRAL THERAPY
  21. EMTRICITABINE + TENOFOVIR DISOPROXIL FUMARATE [Suspect]
     Active Substance: EMTRICITABINE\TENOFOVIR DISOPROXIL FUMARATE
     Indication: HIV INFECTION
     Dosage: 1 ML OF TRIAMCINOLONE 40 MG INJECTED ()
     Route: 065
  22. QUETIAPINE FILM-COATED TABLET [Suspect]
     Active Substance: QUETIAPINE
     Indication: CHRONIC HEPATITIS C
  23. TIAPRIDE [Suspect]
     Active Substance: TIAPRIDE
     Indication: CHRONIC HEPATITIS C
  24. OLANZAPINE. [Suspect]
     Active Substance: OLANZAPINE
     Indication: HIV INFECTION
     Dosage: 1 ML OF TRIAMCINOLONE 40 MG INJECTED ()
     Route: 065
  25. LAMIVUDINE. [Suspect]
     Active Substance: LAMIVUDINE
     Indication: HIV INFECTION
     Dosage: 1 ML OF TRIAMCINOLONE 40 MG INJECTED ()
     Route: 065
  26. LOPINAVIR + RITONAVIR [Suspect]
     Active Substance: LOPINAVIR\RITONAVIR
     Indication: CHRONIC HEPATITIS C
     Dosage: 1 ML OF TRIAMCINOLONE 40 MG INJECTED ()
     Route: 065
  27. METHADONE [Suspect]
     Active Substance: METHADONE HYDROCHLORIDE
     Indication: HIV INFECTION
  28. ZIDOVUDINE. [Suspect]
     Active Substance: ZIDOVUDINE
     Indication: HIV INFECTION
  29. ZIDOVUDINE. [Suspect]
     Active Substance: ZIDOVUDINE
     Indication: ANTIRETROVIRAL THERAPY
  30. TIAPRIDE [Suspect]
     Active Substance: TIAPRIDE
     Indication: ANTIRETROVIRAL THERAPY
  31. OLANZAPINE. [Suspect]
     Active Substance: OLANZAPINE
     Indication: CHRONIC HEPATITIS C
  32. LOPINAVIR + RITONAVIR [Suspect]
     Active Substance: LOPINAVIR\RITONAVIR
     Indication: HIV INFECTION
  33. LOPINAVIR + RITONAVIR [Suspect]
     Active Substance: LOPINAVIR\RITONAVIR
     Indication: ANTIRETROVIRAL THERAPY
  34. EMTRICITABINE + TENOFOVIR DISOPROXIL FUMARATE [Suspect]
     Active Substance: EMTRICITABINE\TENOFOVIR DISOPROXIL FUMARATE
     Indication: HEPATITIS C
  35. ZIDOVUDINE. [Suspect]
     Active Substance: ZIDOVUDINE
     Indication: HEPATITIS C
  36. SERTRALINE [Suspect]
     Active Substance: SERTRALINE HYDROCHLORIDE
     Indication: HIV INFECTION
     Dosage: 1 ML OF TRIAMCINOLONE 40 MG INJECTED ()
     Route: 065
  37. SERTRALINE [Suspect]
     Active Substance: SERTRALINE HYDROCHLORIDE
     Indication: CHRONIC HEPATITIS C
  38. LAMIVUDINE. [Suspect]
     Active Substance: LAMIVUDINE
     Indication: HEPATITIS C
  39. LOPINAVIR + RITONAVIR [Suspect]
     Active Substance: LOPINAVIR\RITONAVIR
     Indication: HEPATITIS C
  40. ALCOHOL. [Suspect]
     Active Substance: ALCOHOL
     Indication: PRODUCT USED FOR UNKNOWN INDICATION
     Dosage: UNK
     Route: 065
  41. ZIDOVUDINE. [Suspect]
     Active Substance: ZIDOVUDINE
     Indication: CHRONIC HEPATITIS C
     Dosage: 1 ML OF TRIAMCINOLONE 40 MG INJECTED ()
     Route: 065
  42. VENLAFAXINE [Suspect]
     Active Substance: VENLAFAXINE HYDROCHLORIDE
     Indication: CHRONIC HEPATITIS C
     Dosage: 1 ML OF TRIAMCINOLONE 40 MG INJECTED ()
     Route: 065
  43. METHADONE [Suspect]
     Active Substance: METHADONE HYDROCHLORIDE
     Indication: CHRONIC HEPATITIS C
     Dosage: 1 ML OF TRIAMCINOLONE 40 MG INJECTED
     Route: 065

REACTIONS (2)
  - Hepatic fibrosis [Unknown]
  - Drug-induced liver injury [Unknown]
